FAERS Safety Report 14660116 (Version 1)
Quarter: 2018Q1

REPORT INFORMATION
  Report Type: Report from Study
  Country: None (occurrence: CA)
  Receive Date: 20180320
  Receipt Date: 20180320
  Transmission Date: 20180509
  Serious: Yes (Other)
  Sender: FDA-Public Use
  Company Number: CA-ABBVIE-18K-028-2285912-00

PATIENT
  Sex: Female

DRUGS (2)
  1. HUMIRA [Suspect]
     Active Substance: ADALIMUMAB
     Route: 058
     Dates: start: 20180312
  2. HUMIRA [Suspect]
     Active Substance: ADALIMUMAB
     Indication: RHEUMATOID ARTHRITIS
     Route: 058
     Dates: start: 20140424, end: 20180224

REACTIONS (7)
  - Contusion [Not Recovered/Not Resolved]
  - Hidradenitis [Not Recovered/Not Resolved]
  - Skin infection [Recovered/Resolved]
  - Joint swelling [Not Recovered/Not Resolved]
  - Dermal cyst [Recovered/Resolved]
  - Sensitivity to weather change [Not Recovered/Not Resolved]
  - Dermal cyst [Recovered/Resolved]

NARRATIVE: CASE EVENT DATE: 2017
